FAERS Safety Report 16078996 (Version 1)
Quarter: 2019Q1

REPORT INFORMATION
  Report Type: Spontaneous
  Country: US (occurrence: US)
  Receive Date: 20190315
  Receipt Date: 20190315
  Transmission Date: 20190418
  Serious: No
  Sender: FDA-Public Use
  Company Number: US-ASTRAZENECA-2019SE28302

PATIENT
  Sex: Female

DRUGS (1)
  1. SYMBICORT [Suspect]
     Active Substance: BUDESONIDE\FORMOTEROL FUMARATE DIHYDRATE
     Dosage: 160/4.5 MCG, TWO PUFFS TWO TIMES A DAY
     Route: 055

REACTIONS (7)
  - Intentional device misuse [Unknown]
  - Asthma [Unknown]
  - Drug ineffective [Unknown]
  - Device malfunction [Unknown]
  - Condition aggravated [Unknown]
  - Nasopharyngitis [Unknown]
  - Dyspnoea [Unknown]
